FAERS Safety Report 17642934 (Version 1)
Quarter: 2020Q2

REPORT INFORMATION
  Report Type: Spontaneous
  Country: ES (occurrence: ES)
  Receive Date: 20200408
  Receipt Date: 20200408
  Transmission Date: 20200713
  Serious: Yes (Hospitalization)
  Sender: FDA-Public Use
  Company Number: ES-TEVA-2020-ES-1220806

PATIENT
  Age: 83 Year
  Sex: Male

DRUGS (6)
  1. ALDACTONE [Concomitant]
     Active Substance: SPIRONOLACTONE
     Indication: PRODUCT USED FOR UNKNOWN INDICATION
     Dosage: 100 MG
     Route: 048
     Dates: start: 20200130
  2. LINEZOLID 600 MG COMPRIMIDO [Suspect]
     Active Substance: LINEZOLID
     Indication: DEVICE RELATED INFECTION
     Dosage: 600 MG
     Dates: start: 20200309, end: 20200319
  3. FUROSEMIDA CINFA 40 MG COMPRIMIDOS EFG, 30 COMPRIMIDOS [Concomitant]
     Indication: PRODUCT USED FOR UNKNOWN INDICATION
     Dosage: 40 MG
     Route: 048
     Dates: start: 20200130
  4. CLEXANE 6.000 UI (60 MG)/ 0,6 ML SOLUCION INYECTABLE EN JERINGA PRECAR [Concomitant]
     Indication: LIVER INJURY
     Dosage: 60 MG
     Route: 058
     Dates: start: 20200129
  5. PROPRANOLOL ACCORD 10 MG COMPRIMIDOS RECUBIERTOS CON PELICULA EFG , 50 [Concomitant]
     Indication: PRODUCT USED FOR UNKNOWN INDICATION
     Dosage: 10 MG
     Route: 048
     Dates: start: 20200129
  6. ESPIRONOLACTONA 25 MG COMPRIMIDO [Concomitant]
     Indication: PRODUCT USED FOR UNKNOWN INDICATION
     Dosage: 25 MILLIGRAM
     Route: 048
     Dates: start: 20200129

REACTIONS (2)
  - Pancytopenia [Recovering/Resolving]
  - Renal failure [Recovering/Resolving]

NARRATIVE: CASE EVENT DATE: 20200316
